FAERS Safety Report 7609923-3 (Version None)
Quarter: 2011Q3

REPORT INFORMATION
  Report Type: 
  Country: None (occurrence: None)
  Receive Date: 20110714
  Receipt Date: 20110703
  Transmission Date: 20111222
  Serious: Yes (Death)
  Sender: FDA-Public Use
  Company Number: US-BAXTER-2011BH022870

PATIENT

DRUGS (14)
  1. CYCLOPHOSPHAMIDE [Suspect]
     Indication: BURKITT'S LEUKAEMIA
     Route: 065
  2. DEXAMETHASONE [Suspect]
     Indication: BURKITT'S LEUKAEMIA
     Route: 065
  3. RITUXIMAB [Suspect]
     Indication: BURKITT'S LEUKAEMIA
     Route: 065
  4. METHOTREXATE [Suspect]
     Indication: BURKITT'S LEUKAEMIA
     Route: 038
  5. METHOTREXATE [Suspect]
     Indication: BURKITT'S LYMPHOMA
     Route: 038
  6. RITUXIMAB [Suspect]
     Indication: BURKITT'S LYMPHOMA
     Route: 065
  7. CYCLOPHOSPHAMIDE [Suspect]
     Indication: BURKITT'S LYMPHOMA
     Route: 065
  8. CYTARABINE [Suspect]
     Indication: BURKITT'S LEUKAEMIA
     Route: 065
  9. DEXAMETHASONE [Suspect]
     Indication: BURKITT'S LYMPHOMA
     Route: 065
  10. VINCRISTINE [Suspect]
     Indication: BURKITT'S LEUKAEMIA
     Route: 065
  11. VINCRISTINE [Suspect]
     Indication: BURKITT'S LYMPHOMA
     Route: 065
  12. DOXORUBICIN HCL [Suspect]
     Indication: BURKITT'S LYMPHOMA
     Route: 065
  13. DOXORUBICIN HCL [Suspect]
     Indication: BURKITT'S LEUKAEMIA
     Route: 065
  14. CYTARABINE [Suspect]
     Indication: BURKITT'S LYMPHOMA
     Route: 065

REACTIONS (1)
  - TREATMENT RELATED SECONDARY MALIGNANCY [None]
